FAERS Safety Report 4305875-2 (Version None)
Quarter: 2004Q1

REPORT INFORMATION
  Report Type: 
  Country: None (occurrence: None)
  Receive Date: 20040226
  Receipt Date: 20040218
  Transmission Date: 20041129
  Serious: Yes (Other)
  Sender: FDA-Public Use
  Company Number: WAES 0402USA01603

PATIENT
  Age: 69 Year
  Sex: Female

DRUGS (5)
  1. PEPCID [Suspect]
     Route: 042
     Dates: start: 20031109, end: 20031117
  2. FLUMARIN [Concomitant]
     Route: 042
     Dates: start: 20031109, end: 20031112
  3. FLUMARIN [Concomitant]
     Route: 042
     Dates: start: 20031116, end: 20031118
  4. DORMICUM (MIDAZOLAM) [Concomitant]
     Route: 042
     Dates: start: 20031109, end: 20031128
  5. MUSCULAX [Concomitant]
     Route: 042
     Dates: start: 20031110, end: 20031124

REACTIONS (2)
  - BILIRUBIN CONJUGATED INCREASED [None]
  - BLOOD BILIRUBIN INCREASED [None]
